FAERS Safety Report 16880101 (Version 1)
Quarter: 2019Q4

REPORT INFORMATION
  Report Type: Spontaneous
  Country: US (occurrence: US)
  Receive Date: 20191003
  Receipt Date: 20191003
  Transmission Date: 20200122
  Serious: Yes (Hospitalization)
  Sender: FDA-Public Use
  Company Number: US-MYLANLABS-2019M1091792

PATIENT
  Age: 49 Year
  Sex: Female

DRUGS (1)
  1. PAROXETINE. [Suspect]
     Active Substance: PAROXETINE
     Indication: ANTIDEPRESSANT THERAPY
     Route: 065

REACTIONS (6)
  - Drug withdrawal syndrome [Recovering/Resolving]
  - Dizziness [Unknown]
  - Altered state of consciousness [Unknown]
  - Amnesia [Unknown]
  - Hallucination, olfactory [Recovered/Resolved]
  - Confusional state [Unknown]
